FAERS Safety Report 11312776 (Version 1)
Quarter: 2015Q3

REPORT INFORMATION
  Report Type: Spontaneous
  Country: US (occurrence: US)
  Receive Date: 20150727
  Receipt Date: 20150727
  Transmission Date: 20151125
  Serious: No
  Sender: FDA-Public Use
  Company Number: US-ABBVIE-15P-163-1378023-00

PATIENT
  Age: 64 Year
  Sex: Female
  Weight: 72.64 kg

DRUGS (3)
  1. CLARITIN ALLERGIC [Concomitant]
     Indication: SEASONAL ALLERGY
     Route: 048
  2. SYNTHROID [Suspect]
     Active Substance: LEVOTHYROXINE SODIUM
     Indication: HYPOTHYROIDISM
     Route: 048
     Dates: start: 2005, end: 20150413
  3. PEPCINE [Concomitant]
     Indication: GASTROOESOPHAGEAL REFLUX DISEASE
     Dates: start: 201502

REACTIONS (3)
  - Abnormal dreams [Recovered/Resolved]
  - Feeling abnormal [Recovered/Resolved]
  - Product colour issue [Unknown]

NARRATIVE: CASE EVENT DATE: 201504
